FAERS Safety Report 5722849-5 (Version None)
Quarter: 2008Q2

REPORT INFORMATION
  Report Type: 
  Country: None (occurrence: None)
  Receive Date: 20080429
  Receipt Date: 20080117
  Transmission Date: 20081010
  Serious: No
  Sender: FDA-Public Use
  Company Number: US-ASTRAZENECA-2008UW01234

PATIENT
  Age: 53 Year
  Sex: Female
  Weight: 99.8 kg

DRUGS (4)
  1. NEXIUM [Suspect]
     Indication: GASTRIC POLYPS
     Route: 048
     Dates: start: 20060101
  2. ZYRTEC [Concomitant]
  3. FLONASE [Concomitant]
  4. BENICAR HCT [Concomitant]

REACTIONS (1)
  - GASTRIC POLYPS [None]
